FAERS Safety Report 8960291 (Version 1)
Quarter: 2012Q4

REPORT INFORMATION
  Report Type: 
  Country: US (occurrence: US)
  Receive Date: 20121211
  Receipt Date: 20121211
  Transmission Date: 20130627
  Serious: Yes (Other)
  Sender: FDA-Public Use
  Company Number: US-VERTEX PHARMACEUTICALS INC.-2012-025684

PATIENT
  Age: 61 Year
  Sex: Male
  Weight: 100 kg

DRUGS (5)
  1. VX-950 (TELAPREVIR) [Suspect]
     Indication: HEPATITIS C
     Dosage: 750 mg, tid
     Route: 048
     Dates: start: 20121120, end: 20121206
  2. PEGASYS [Suspect]
     Indication: HEPATITIS C
     Dosage: 180 ?g, weekly
     Route: 058
     Dates: start: 20121120, end: 20121206
  3. RIBAPAK [Suspect]
     Indication: HEPATITIS C
     Dosage: 400 mg, bid
     Route: 048
     Dates: start: 20121120, end: 20121206
  4. CITALOPRAM HBR [Concomitant]
     Dosage: 10 mg, qd
  5. ACTIFED COLD + ALLERGY [Concomitant]
     Dosage: UNK, prn

REACTIONS (6)
  - Angioedema [Unknown]
  - Swelling [Unknown]
  - Pruritus generalised [Unknown]
  - Oedema peripheral [Unknown]
  - Rash [Unknown]
  - Anorectal discomfort [Unknown]
